FAERS Safety Report 4407810-5 (Version None)
Quarter: 2004Q3

REPORT INFORMATION
  Report Type: 
  Country: None (occurrence: None)
  Receive Date: 20040721
  Receipt Date: 20040708
  Transmission Date: 20050211
  Serious: Yes (Life-Threatening)
  Sender: FDA-Public Use
  Company Number: GB-JNJFOC-20040702348

PATIENT
  Age: 77 Year
  Sex: Male
  Weight: 55 kg

DRUGS (4)
  1. REMINYL [Suspect]
     Indication: DEPRESSION
     Dosage: 12 MG, 2 IN 1 DAY, ORAL
     Route: 048
     Dates: start: 20031209, end: 20040603
  2. MESALAZINE (MESALAZINE) [Concomitant]
  3. TEOPTIC (CARTEOLOL HYDROCHLORIDE) [Concomitant]
  4. HYDROXOCOBALAMIN (HYDROXOCOBALAMIN) [Concomitant]

REACTIONS (2)
  - BRADYCARDIA [None]
  - DYSPNOEA [None]
